FAERS Safety Report 14282517 (Version 3)
Quarter: 2019Q2

REPORT INFORMATION
  Report Type: Spontaneous
  Country: CN (occurrence: CN)
  Receive Date: 20171213
  Receipt Date: 20190520
  Transmission Date: 20190711
  Serious: No
  Sender: FDA-Public Use
  Company Number: CN-PFIZER INC-2017530292

PATIENT
  Age: 51 Year
  Sex: Female

DRUGS (9)
  1. OXALIPLATIN. [Suspect]
     Active Substance: OXALIPLATIN
     Indication: OVARIAN CANCER
     Dosage: UNK, CYCLIC
     Dates: start: 2016
  2. LIPOSOMAL DOXORUBICIN HCL [Suspect]
     Active Substance: DOXORUBICIN HYDROCHLORIDE
     Indication: OVARIAN CANCER
     Dosage: UNK, CYCLIC (LIPOSOMAL)
     Dates: start: 2016
  3. DOCETAXEL. [Suspect]
     Active Substance: DOCETAXEL
     Indication: OVARIAN CANCER
     Dosage: UNK, CYCLIC
     Dates: start: 2012
  4. LOBAPLATIN [Suspect]
     Active Substance: LOBAPLATIN
     Indication: OVARIAN CANCER
     Dosage: UNK, CYCLIC
     Dates: start: 2012
  5. PACLITAXEL. [Suspect]
     Active Substance: PACLITAXEL
     Indication: OVARIAN CANCER
     Dosage: UNK, CYCLIC
     Dates: start: 2012
  6. CISPLATIN. [Suspect]
     Active Substance: CISPLATIN
     Indication: OVARIAN CANCER
     Dosage: UNK, CYCLIC
     Dates: start: 2012
  7. GEMCITABINE [Suspect]
     Active Substance: GEMCITABINE\GEMCITABINE HYDROCHLORIDE
     Indication: OVARIAN CANCER
     Dosage: UNK, CYCLIC
     Dates: start: 2012
  8. PACLITAXEL LIPOSOME [Suspect]
     Active Substance: PACLITAXEL
     Indication: OVARIAN CANCER
     Dosage: UNK
     Dates: start: 2012
  9. CARBOPLATIN. [Suspect]
     Active Substance: CARBOPLATIN
     Indication: OVARIAN CANCER
     Dosage: UNK, CYCLIC
     Dates: start: 2012

REACTIONS (1)
  - Drug resistance [Recovered/Resolved]
